FAERS Safety Report 7524879-X (Version None)
Quarter: 2011Q2

REPORT INFORMATION
  Report Type: 
  Country: None (occurrence: None)
  Receive Date: 20110606
  Receipt Date: 20110523
  Transmission Date: 20111010
  Serious: Yes (Hospitalization, Other)
  Sender: FDA-Public Use
  Company Number: US-ELI_LILLY_AND_COMPANY-US201009005216

PATIENT
  Sex: Female

DRUGS (3)
  1. FORTEO [Suspect]
     Indication: OSTEOPOROSIS
     Dosage: 20 UG, DAILY (1/D)
     Dates: start: 20100601
  2. FORTEO [Suspect]
     Dosage: 20 UG, DAILY (1/D)
  3. FORTEO [Suspect]
     Dosage: 20 UG, DAILY (1/D)

REACTIONS (10)
  - MUSCLE SPASMS [None]
  - PAIN [None]
  - DRUG INEFFECTIVE [None]
  - WEIGHT INCREASED [None]
  - BONE EROSION [None]
  - SURGERY [None]
  - GAIT DISTURBANCE [None]
  - DEVICE FAILURE [None]
  - POST PROCEDURAL INFECTION [None]
  - MOVEMENT DISORDER [None]
